FAERS Safety Report 8599804-3 (Version None)
Quarter: 2012Q3

REPORT INFORMATION
  Report Type: 
  Country: None (occurrence: None)
  Receive Date: 20120816
  Receipt Date: 20120809
  Transmission Date: 20120928
  Serious: No
  Sender: FDA-Public Use
  Company Number: US-ASTRAZENECA-2012SE53893

PATIENT
  Age: 30 Year
  Sex: Female
  Weight: 62.6 kg

DRUGS (6)
  1. SEROQUEL [Suspect]
     Indication: MOOD ALTERED
     Route: 048
  2. SEROQUEL [Suspect]
     Indication: BIPOLAR DISORDER
     Route: 048
  3. SEROQUEL [Suspect]
     Indication: ANXIETY DISORDER
     Route: 048
  4. SEROQUEL [Suspect]
     Indication: PANIC ATTACK
     Route: 048
  5. SEROQUEL [Suspect]
     Indication: DEPRESSION
     Route: 048
  6. SEROQUEL [Suspect]
     Indication: POST-TRAUMATIC STRESS DISORDER
     Route: 048

REACTIONS (5)
  - INFLUENZA [None]
  - FEELING ABNORMAL [None]
  - DRUG DOSE OMISSION [None]
  - OFF LABEL USE [None]
  - INSOMNIA [None]
